FAERS Safety Report 20092432 (Version 2)
Quarter: 2022Q1

REPORT INFORMATION
  Report Type: Other
  Country: US (occurrence: US)
  Receive Date: 20211119
  Receipt Date: 20220115
  Transmission Date: 20220423
  Serious: Yes (Death)
  Sender: FDA-Public Use
  Company Number: US-NEUROCRINE BIOSCIENCES INC.-2021NBI06722

PATIENT

DRUGS (14)
  1. INGREZZA [Suspect]
     Active Substance: VALBENAZINE
     Indication: Tardive dyskinesia
     Dosage: 80 MILLIGRAM, QD
     Route: 048
     Dates: start: 20180510, end: 20211026
  2. ZYPREXA [Concomitant]
     Active Substance: OLANZAPINE
     Indication: Bipolar disorder
     Dosage: 10 MILLIGRAM, BID
     Route: 048
     Dates: start: 20170918, end: 20211026
  3. COGENTIN [Concomitant]
     Active Substance: BENZTROPINE MESYLATE
     Indication: Extrapyramidal disorder
     Dosage: 1.5 MILLIGRAM, TID
     Route: 048
     Dates: end: 20211026
  4. COGENTIN [Concomitant]
     Active Substance: BENZTROPINE MESYLATE
     Dosage: 1 MILLIGRAM, TID
  5. COGENTIN [Concomitant]
     Active Substance: BENZTROPINE MESYLATE
     Dosage: 0.5 MILLIGRAM, BID
  6. CLONIDINE [Concomitant]
     Active Substance: CLONIDINE
     Indication: Tourette^s disorder
     Dosage: 0.1 MILLIGRAM, TID
     Route: 048
     Dates: start: 20170825, end: 20211026
  7. KLONOPIN [Concomitant]
     Active Substance: CLONAZEPAM
     Indication: Bipolar disorder
     Dosage: 1 MILLIGRAM, BID
     Route: 048
     Dates: start: 20090212, end: 20211026
  8. KLONOPIN [Concomitant]
     Active Substance: CLONAZEPAM
     Dosage: 0.5 MILLIGRAM EVERY 4 HOURS
  9. PEPCID [Concomitant]
     Active Substance: FAMOTIDINE
     Indication: Gastrooesophageal reflux disease
     Dosage: 20 MILLIGRAM, BID
     Route: 048
     Dates: end: 20211026
  10. ASPIRIN [Concomitant]
     Active Substance: ASPIRIN
     Dosage: 81 MILLIGRAM, QD
  11. COLACE [Concomitant]
     Active Substance: DOCUSATE SODIUM
     Dosage: 100 MILLIGRAM, QD
  12. VITAMINS [Concomitant]
     Active Substance: VITAMINS
     Dosage: UNK, QD
  13. SYNTHROID [Concomitant]
     Active Substance: LEVOTHYROXINE SODIUM
     Dosage: 50 MICROGRAM, QD
  14. PROSCAR [Concomitant]
     Active Substance: FINASTERIDE
     Dosage: 5 MILLIGRAM, QHS

REACTIONS (1)
  - Choking [Fatal]

NARRATIVE: CASE EVENT DATE: 20211026
